FAERS Safety Report 9192928 (Version 1)
Quarter: 2013Q1

REPORT INFORMATION
  Report Type: Spontaneous
  Country: LB (occurrence: LB)
  Receive Date: 20130327
  Receipt Date: 20130327
  Transmission Date: 20140127
  Serious: Yes (Death)
  Sender: FDA-Public Use
  Company Number: LB-SANOFI-AVENTIS-200710140EU

PATIENT
  Age: 76 Year
  Sex: Female

DRUGS (4)
  1. ENOXAPARIN SODIUM [Suspect]
     Indication: THROMBOSIS PROPHYLAXIS
     Route: 058
     Dates: start: 20070105, end: 20070108
  2. TAVANIC [Concomitant]
     Indication: PNEUMONIA
     Route: 042
     Dates: start: 20070105, end: 20070108
  3. ZANTAC [Concomitant]
     Indication: PROPHYLAXIS
     Route: 042
     Dates: start: 20070105, end: 20070108
  4. ACTRAPID INSULIN NOVO [Concomitant]
     Indication: DIABETES MELLITUS
     Route: 058
     Dates: start: 20070105, end: 20070108

REACTIONS (1)
  - Pneumonia [Fatal]
